FAERS Safety Report 16286389 (Version 1)
Quarter: 2019Q2

REPORT INFORMATION
  Report Type: Spontaneous
  Country: US (occurrence: US)
  Receive Date: 20190507
  Receipt Date: 20190507
  Transmission Date: 20190711
  Serious: Yes (Disabling)
  Sender: FDA-Public Use
  Company Number: None

PATIENT
  Age: 40 Year
  Sex: Male
  Weight: 69.75 kg

DRUGS (1)
  1. CIPROFLOXACIN. [Suspect]
     Active Substance: CIPROFLOXACIN
     Indication: GASTRIC DISORDER
     Dosage: ?          QUANTITY:10 TABLET(S);?
     Route: 048

REACTIONS (4)
  - Gait inability [None]
  - Musculoskeletal disorder [None]
  - Visual impairment [None]
  - Neurological symptom [None]

NARRATIVE: CASE EVENT DATE: 20190203
